FAERS Safety Report 4727361-8 (Version None)
Quarter: 2005Q3

REPORT INFORMATION
  Report Type: 
  Country: None (occurrence: None)
  Receive Date: 20050727
  Receipt Date: 20050727
  Transmission Date: 20060218
  Serious: Yes (Life-Threatening, Hospitalization)
  Sender: FDA-Public Use
  Company Number: None

PATIENT
  Age: 72 Year
  Sex: Male
  Weight: 89.8122 kg

DRUGS (8)
  1. MIDAZOLAM HCL [Suspect]
     Indication: SEDATION
     Dosage: 2 MG IV OTO
     Route: 042
     Dates: start: 20050413
  2. FENTANYL [Suspect]
     Indication: SEDATION
     Dosage: 100 MCG OTO
     Route: 065
     Dates: start: 20050413
  3. MAGNESIUM [Concomitant]
  4. ENOXAPARIN SODIUM [Concomitant]
  5. TOPROL-XL [Concomitant]
  6. WARFARIN [Concomitant]
  7. ASPIRIN [Concomitant]
  8. ZANTAC [Concomitant]

REACTIONS (4)
  - CARDIO-RESPIRATORY ARREST [None]
  - LOSS OF CONSCIOUSNESS [None]
  - POST PROCEDURAL COMPLICATION [None]
  - SOMNOLENCE [None]
